FAERS Safety Report 5827654-7 (Version None)
Quarter: 2008Q2

REPORT INFORMATION
  Report Type: 
  Country: None (occurrence: None)
  Receive Date: 20080601
  Receipt Date: 20080210
  Transmission Date: 20081010
  Serious: No
  Sender: FDA-Public Use
  Company Number: US200802002121

PATIENT
  Age: 70 Year
  Sex: Male
  Weight: 101.6 kg

DRUGS (3)
  1. BYETTA [Suspect]
     Indication: TYPE 2 DIABETES MELLITUS
     Dosage: 5 UG, 2/D, SUBCUTANEOUS
     Route: 058
     Dates: start: 20080201
  2. AMARYL [Concomitant]
  3. ARANESP [Concomitant]

REACTIONS (2)
  - BLOOD GLUCOSE INCREASED [None]
  - DRUG INEFFECTIVE [None]
